FAERS Safety Report 5104414-6 (Version None)
Quarter: 2006Q3

REPORT INFORMATION
  Report Type: 
  Country: None (occurrence: None)
  Receive Date: 20060908
  Receipt Date: 20060908
  Transmission Date: 20061208
  Serious: Yes (Other)
  Sender: FDA-Public Use
  Company Number: None

PATIENT
  Sex: Male
  Weight: 29.4838 kg

DRUGS (4)
  1. FOCALIN [Suspect]
     Indication: ATTENTION DEFICIT/HYPERACTIVITY DISORDER
     Dosage: 7.5 MG -3--2.5 MG BID MORNING, NOON PO
     Route: 048
     Dates: start: 20050915, end: 20060907
  2. PAROXETINE [Suspect]
     Indication: ANXIETY
     Dosage: 30 MG ONCE A DAY PO
     Route: 048
     Dates: start: 20050915, end: 20060907
  3. PAROXETINE [Suspect]
     Indication: DEPRESSION
     Dosage: 30 MG ONCE A DAY PO
     Route: 048
     Dates: start: 20050915, end: 20060907
  4. PAROXETINE [Suspect]
     Indication: OBSESSIVE-COMPULSIVE DISORDER
     Dosage: 30 MG ONCE A DAY PO
     Route: 048
     Dates: start: 20050915, end: 20060907

REACTIONS (2)
  - MUSCLE SPASTICITY [None]
  - TIC [None]
